FAERS Safety Report 4451793-9 (Version None)
Quarter: 2004Q3

REPORT INFORMATION
  Report Type: 
  Country: None (occurrence: None)
  Receive Date: 20040917
  Receipt Date: 20040824
  Transmission Date: 20050211
  Serious: Yes (Other)
  Sender: FDA-Public Use
  Company Number: 200418431GDDC

PATIENT
  Age: 67 Year
  Sex: Female

DRUGS (5)
  1. TAXOTERE [Suspect]
     Indication: LUNG NEOPLASM MALIGNANT
     Dosage: DOSE: 35 (D1 AND D8)
     Route: 042
     Dates: start: 20040807, end: 20040807
  2. OXYGEN [Suspect]
     Dosage: DOSE: UNK
  3. CARBOPLATIN [Concomitant]
     Indication: LUNG NEOPLASM MALIGNANT
     Dosage: DOSE: 300 (D1)
     Route: 042
     Dates: start: 20040807, end: 20040807
  4. PREDNISONE [Concomitant]
     Indication: LUNG NEOPLASM MALIGNANT
     Route: 048
     Dates: start: 20040801
  5. LOSEC [Concomitant]
     Route: 048
     Dates: start: 20040801

REACTIONS (4)
  - DRUG TOXICITY [None]
  - METASTASIS [None]
  - RETINAL DETACHMENT [None]
  - RETINAL DISORDER [None]
